FAERS Safety Report 8439607-3 (Version None)
Quarter: 2012Q2

REPORT INFORMATION
  Report Type: 
  Country: None (occurrence: None)
  Receive Date: 20120615
  Receipt Date: 20120607
  Transmission Date: 20120825
  Serious: Yes (Other)
  Sender: FDA-Public Use
  Company Number: US-UCBSA-058904

PATIENT
  Age: 8 Year
  Sex: Female

DRUGS (2)
  1. KEPPRA [Suspect]
     Dosage: ONE DOSE
     Route: 048
     Dates: start: 20120601, end: 20120601
  2. KEPPRA [Suspect]
     Dosage: UNKNOWN DOSE TAKING FROM 1 1/2 YEARS
     Route: 048

REACTIONS (4)
  - ORAL DISCOMFORT [None]
  - HYPERSENSITIVITY [None]
  - LIP SWELLING [None]
  - THROAT IRRITATION [None]
